FAERS Safety Report 20036293 (Version 1)
Quarter: 2021Q4

REPORT INFORMATION
  Report Type: Spontaneous
  Country: ES (occurrence: ES)
  Receive Date: 20211105
  Receipt Date: 20211105
  Transmission Date: 20220303
  Serious: Yes (Hospitalization, Other)
  Sender: FDA-Public Use
  Company Number: ES-AEMPS-1029513

PATIENT
  Age: 55 Year
  Sex: Male
  Weight: 78 kg

DRUGS (2)
  1. FUROSEMIDE [Interacting]
     Active Substance: FUROSEMIDE
     Indication: Hepatic hydrothorax
     Dosage: UNK (FUROSEMIDE 40 MG: 1 CP A DAY MONDAY, WEDNESDAY AND FRIDAY. HALF TABLET TUESDAY, THURSDAY, SATUR
     Route: 048
     Dates: start: 20200212
  2. SPIRONOLACTONE [Interacting]
     Active Substance: SPIRONOLACTONE
     Indication: Hepatic hydrothorax
     Dosage: UNK (1-0-0)
     Route: 048
     Dates: start: 20200219

REACTIONS (1)
  - Acute kidney injury [Recovered/Resolved]

NARRATIVE: CASE EVENT DATE: 20210511
